FAERS Safety Report 23085338 (Version 2)
Quarter: 2023Q4

REPORT INFORMATION
  Report Type: Spontaneous
  Country: US (occurrence: US)
  Receive Date: 20231019
  Receipt Date: 20231130
  Transmission Date: 20240110
  Serious: No
  Sender: FDA-Public Use
  Company Number: US-BRISTOL-MYERS SQUIBB COMPANY-2023-149151

PATIENT
  Age: 74 Year
  Sex: Female
  Weight: 80.74 kg

DRUGS (2)
  1. POMALYST [Suspect]
     Active Substance: POMALIDOMIDE
     Indication: Plasma cell myeloma
     Dosage: FREQUENCY-21D ON 7D OFF
     Route: 048
  2. POMALYST [Suspect]
     Active Substance: POMALIDOMIDE
     Dosage: 3WKSON,1OFF
     Route: 048

REACTIONS (3)
  - Hot flush [Unknown]
  - Influenza like illness [Unknown]
  - Drug intolerance [Unknown]
